FAERS Safety Report 8561566-3 (Version None)
Quarter: 2012Q3

REPORT INFORMATION
  Report Type: 
  Country: None (occurrence: None)
  Receive Date: 20120802
  Receipt Date: 20120801
  Transmission Date: 20120928
  Serious: Yes (Death, Hospitalization, Other)
  Sender: FDA-Public Use
  Company Number: PHHY2012JP049254

PATIENT
  Age: 59 Year
  Sex: Male

DRUGS (1)
  1. DOCETAXEL [Suspect]
     Indication: ADENOSQUAMOUS CELL LUNG CANCER STAGE IV

REACTIONS (7)
  - ACUTE INTERSTITIAL PNEUMONITIS [None]
  - RALES [None]
  - LYMPHOCYTOSIS [None]
  - DEATH [None]
  - ACUTE LUNG INJURY [None]
  - RESPIRATORY FAILURE [None]
  - NEUTROPHIL COUNT DECREASED [None]
